FAERS Safety Report 21404164 (Version 1)
Quarter: 2022Q4

REPORT INFORMATION
  Report Type: Spontaneous
  Country: US (occurrence: US)
  Receive Date: 20221003
  Receipt Date: 20221003
  Transmission Date: 20230113
  Serious: Yes (Hospitalization, Other)
  Sender: FDA-Public Use
  Company Number: US-TAKEDA-2022TUS068123

PATIENT
  Sex: Female
  Weight: 55 kg

DRUGS (1)
  1. LIALDA [Suspect]
     Active Substance: MESALAMINE
     Indication: Irritable bowel syndrome
     Dosage: 1.2 GRAM, QID
     Route: 065
     Dates: start: 202208, end: 20220910

REACTIONS (9)
  - Heart rate increased [Unknown]
  - Pneumonia [Unknown]
  - Urinary tract infection [Unknown]
  - Reduced facial expression [Unknown]
  - Nervous system disorder [Unknown]
  - Urinary incontinence [Unknown]
  - Dysphonia [Unknown]
  - Blood lactic acid increased [Unknown]
  - Pyrexia [Unknown]
